FAERS Safety Report 14583078 (Version 1)
Quarter: 2018Q1

REPORT INFORMATION
  Report Type: Report from Study
  Country: US (occurrence: US)
  Receive Date: 20180228
  Receipt Date: 20180228
  Transmission Date: 20180509
  Serious: Yes (Other)
  Sender: FDA-Public Use
  Company Number: US-TEVA-2018-US-865733

PATIENT
  Age: 26 Year
  Sex: Female

DRUGS (1)
  1. COPAXONE [Suspect]
     Active Substance: GLATIRAMER ACETATE
     Indication: MULTIPLE SCLEROSIS
     Route: 058
     Dates: start: 20171215, end: 20171227

REACTIONS (8)
  - Blood pressure increased [Unknown]
  - Fatigue [Unknown]
  - Heart rate increased [Unknown]
  - Dizziness [Unknown]
  - Monoparesis [Unknown]
  - Fall [Unknown]
  - Contusion [Unknown]
  - Loss of consciousness [Unknown]

NARRATIVE: CASE EVENT DATE: 201712
